FAERS Safety Report 5333797-7 (Version None)
Quarter: 2007Q1

REPORT INFORMATION
  Report Type: 
  Country: None (occurrence: None)
  Receive Date: 20070306
  Receipt Date: 20051216
  Transmission Date: 20070707
  Serious: Yes (Hospitalization)
  Sender: FDA-Public Use
  Company Number: A03200504305

PATIENT
  Age: 73 Year
  Sex: Male
  Weight: 70.29 kg

DRUGS (5)
  1. PLAVIX [Suspect]
     Indication: CORONARY ARTERIAL STENT INSERTION
     Dosage: 75 MG QD - ORAL
     Route: 048
     Dates: start: 20050919, end: 20051211
  2. FINASTERIDE [Concomitant]
  3. FAMOTIDINE [Concomitant]
  4. DICLOFENAC SODIUM [Concomitant]
  5. MISOPROSTOL [Concomitant]

REACTIONS (3)
  - CONTUSION [None]
  - DIVERTICULUM INTESTINAL HAEMORRHAGIC [None]
  - RECTAL HAEMORRHAGE [None]
